FAERS Safety Report 9734398 (Version 3)
Quarter: 2013Q4

REPORT INFORMATION
  Report Type: Report from Study
  Country: DE (occurrence: DE)
  Receive Date: 20131206
  Receipt Date: 20131217
  Transmission Date: 20140711
  Serious: Yes (Other)
  Sender: FDA-Public Use
  Company Number: DE-BEH-2013038286

PATIENT
  Age: 72 Year
  Sex: Female
  Weight: 95 kg

DRUGS (8)
  1. PRIVIGEN [Suspect]
     Indication: B-CELL LYMPHOMA
     Dosage: INFUSIONS RATEMIN:1 MAX: 2 ML/MIN
     Route: 042
     Dates: start: 20130123, end: 20130123
  2. PRIVIGEN [Suspect]
     Dosage: INFUSIONS RATEMIN:1 MAX: 2 ML/MIN
     Dates: start: 20130213, end: 20130213
  3. PRIVIGEN [Suspect]
     Dosage: INFUSIONS RATEMIN:1 MAX: 2 ML/MIN
     Dates: start: 20130306, end: 20130306
  4. PRIVIGEN [Suspect]
     Dosage: INFUSIONS RATEMIN:1 MAX: 2 ML/MIN
     Dates: start: 20131002, end: 20131002
  5. LETROZOL [Concomitant]
     Indication: BREAST CANCER
     Dosage: STARTING IN FEB-2013
     Route: 048
  6. SOLU DECORTIN H [Interacting]
     Indication: PREMEDICATION
     Route: 042
     Dates: start: 20130123, end: 20131002
  7. TAVEGIL [Interacting]
     Indication: PREMEDICATION
     Dosage: DF: AMPULE
     Route: 042
     Dates: start: 20130123, end: 20131002
  8. RANITIDIN [Interacting]
     Indication: PREMEDICATION
     Dosage: DF: AMPULE
     Route: 042
     Dates: start: 20130123, end: 20131002

REACTIONS (4)
  - Circulatory collapse [Recovered/Resolved]
  - Blood pressure decreased [Recovered/Resolved]
  - Dysarthria [Recovered/Resolved]
  - Disorientation [Recovered/Resolved]
